FAERS Safety Report 8407254-5 (Version None)
Quarter: 2012Q2

REPORT INFORMATION
  Report Type: 
  Country: None (occurrence: None)
  Receive Date: 20120604
  Receipt Date: 20120522
  Transmission Date: 20120825
  Serious: Yes (Hospitalization)
  Sender: FDA-Public Use
  Company Number: US-ROCHE-1071486

PATIENT
  Age: 42 Year
  Sex: Male

DRUGS (14)
  1. DOCETAXEL [Suspect]
     Indication: GASTRIC CANCER
     Dosage: DATE OF LAST DOSE PRIOR TO SAE:10/MAY/2012
     Dates: start: 20120228
  2. NADOLOL [Concomitant]
     Dates: start: 20120412
  3. CISPLATIN [Suspect]
     Indication: GASTRIC CANCER
     Dosage: DATE OF LAST DOSE PRIOR TO SAE:10/MAY/2012
     Dates: start: 20120228
  4. APREPITANT [Concomitant]
     Dates: start: 20120329
  5. ONDANSETRON [Concomitant]
     Dates: start: 20120329, end: 20120412
  6. CALCIUM CARBONATE/VITAMIN D NOS [Concomitant]
     Dates: start: 20120329
  7. DEXAMETHASONE [Concomitant]
     Dates: start: 20120329
  8. HERCEPTIN [Suspect]
     Indication: GASTRIC CANCER
     Dosage: DATE OF LAST DOSE PRIOR TO SAE:10/MAY/2012
     Dates: start: 20120228
  9. ACETAMINOPHEN [Concomitant]
     Dates: start: 20120301, end: 20120412
  10. ASPIRIN [Concomitant]
     Dates: start: 20120412
  11. ATORVASTATIN CALCIUM [Concomitant]
     Dates: start: 20120301, end: 20120412
  12. FLUOROURACIL [Suspect]
     Indication: GASTRIC CANCER
     Dosage: DATE OF LAST DOSE PRIOR TO SAE:10/MAY/2012
     Dates: start: 20120228
  13. LEUCOVORIN CALCIUM [Suspect]
     Indication: GASTRIC CANCER
     Dosage: DATE OF LAST DOSE PRIOR TO SAE:10/MAY/2012
     Dates: start: 20120228
  14. OXYCODONE HYDROCHLORIDE [Concomitant]
     Dates: start: 20120301, end: 20120412

REACTIONS (2)
  - THROMBOSIS [None]
  - LEFT VENTRICULAR DYSFUNCTION [None]
